FAERS Safety Report 7687284-1 (Version None)
Quarter: 2011Q3

REPORT INFORMATION
  Report Type: 
  Country: None (occurrence: None)
  Receive Date: 20110816
  Receipt Date: 20110809
  Transmission Date: 20111222
  Serious: Yes (Other)
  Sender: FDA-Public Use
  Company Number: BR-PFIZER INC-2011182317

PATIENT
  Age: 73 Year
  Sex: Female

DRUGS (2)
  1. XALATAN [Suspect]
     Indication: GLAUCOMA
     Dosage: 3 UG, ONE DROP IN EACH EYE, ONCE DAILY
     Route: 047
     Dates: start: 19800101, end: 20000101
  2. LATANOPROST [Suspect]

REACTIONS (3)
  - DYSSTASIA [None]
  - DYSPNOEA [None]
  - BRONCHITIS [None]
